FAERS Safety Report 7744804-6 (Version None)
Quarter: 2011Q3

REPORT INFORMATION
  Report Type: 
  Country: None (occurrence: None)
  Receive Date: 20110912
  Receipt Date: 20110912
  Transmission Date: 20111222
  Serious: Yes (Hospitalization, Other)
  Sender: FDA-Public Use
  Company Number: None

PATIENT
  Age: 58 Year
  Sex: Female
  Weight: 97.522 kg

DRUGS (1)
  1. RECLAST [Suspect]
     Indication: OSTEOPOROSIS
     Route: 041
     Dates: start: 20110203, end: 20110203

REACTIONS (10)
  - MEDICAL DEVICE PAIN [None]
  - FATIGUE [None]
  - ALOPECIA [None]
  - DYSPNOEA [None]
  - BLISTER [None]
  - GASTROOESOPHAGEAL REFLUX DISEASE [None]
  - INFLUENZA LIKE ILLNESS [None]
  - JAW DISORDER [None]
  - PAIN [None]
  - BONE PAIN [None]
